FAERS Safety Report 4946246-5 (Version None)
Quarter: 2006Q1

REPORT INFORMATION
  Report Type: 
  Country: None (occurrence: None)
  Receive Date: 20060317
  Receipt Date: 20050616
  Transmission Date: 20060701
  Serious: Yes (Death)
  Sender: FDA-Public Use
  Company Number: FR-SANOFI-SYNTHELABO-A02200501719

PATIENT
  Sex: Male

DRUGS (7)
  1. STILNOX [Suspect]
     Indication: DRUG USE FOR UNKNOWN INDICATION
     Dosage: UNK
     Route: 048
     Dates: start: 20031013
  2. SUBUTEX [Suspect]
     Dosage: UNK
     Route: 048
  3. METHADONE [Suspect]
     Dosage: 100 MG
     Route: 048
  4. VALIUM [Suspect]
     Indication: DRUG USE FOR UNKNOWN INDICATION
     Route: 048
     Dates: start: 20051006, end: 20051013
  5. VALIUM [Suspect]
     Route: 048
     Dates: start: 20031013
  6. THERALENE [Suspect]
     Indication: DRUG USE FOR UNKNOWN INDICATION
     Route: 048
     Dates: start: 20051010, end: 20051010
  7. THERALENE [Suspect]
     Route: 048
     Dates: start: 20051013

REACTIONS (11)
  - AGGRESSION [None]
  - COMPLETED SUICIDE [None]
  - DRUG DEPENDENCE [None]
  - DYSTHYMIC DISORDER [None]
  - ECONOMIC PROBLEM [None]
  - GAMMA-GLUTAMYLTRANSFERASE INCREASED [None]
  - LOSS OF EMPLOYMENT [None]
  - OVERDOSE [None]
  - PSYCHOMOTOR SKILLS IMPAIRED [None]
  - SOCIAL AVOIDANT BEHAVIOUR [None]
  - SUICIDE ATTEMPT [None]
